FAERS Safety Report 13704743 (Version 2)
Quarter: 2017Q3

REPORT INFORMATION
  Report Type: Report from Study
  Country: US (occurrence: US)
  Receive Date: 20170630
  Receipt Date: 20170920
  Transmission Date: 20171127
  Serious: Yes (Hospitalization)
  Sender: FDA-Public Use
  Company Number: US-ROCHE-1852009

PATIENT
  Age: 79 Year
  Sex: Female
  Weight: 54.12 kg

DRUGS (10)
  1. MORPHINE [Concomitant]
     Active Substance: MORPHINE
  2. SODIUM CHLORIDE. [Concomitant]
     Active Substance: SODIUM CHLORIDE
  3. FENTANYL. [Concomitant]
     Active Substance: FENTANYL
  4. ENOXAPARIN [Concomitant]
     Active Substance: ENOXAPARIN
  5. ACETAMINOPHEN/HYDROCODONE [Concomitant]
     Active Substance: ACETAMINOPHEN\HYDROCODONE
  6. CARVEDILOL. [Concomitant]
     Active Substance: CARVEDILOL
     Route: 065
  7. TRASTUZUMAB. [Suspect]
     Active Substance: TRASTUZUMAB
     Indication: HER-2 POSITIVE BREAST CANCER
     Route: 065
  8. KEPPRA [Concomitant]
     Active Substance: LEVETIRACETAM
  9. K-DUR [Concomitant]
     Active Substance: POTASSIUM CHLORIDE
  10. DEXTROSE. [Concomitant]
     Active Substance: DEXTROSE

REACTIONS (5)
  - Fall [Unknown]
  - Femoral neck fracture [Recovered/Resolved with Sequelae]
  - Syncope [Recovered/Resolved]
  - Asthenia [Recovered/Resolved with Sequelae]
  - Syncope [Recovered/Resolved with Sequelae]

NARRATIVE: CASE EVENT DATE: 20161106
